FAERS Safety Report 4431699-1 (Version None)
Quarter: 2004Q3

REPORT INFORMATION
  Report Type: 
  Country: None (occurrence: None)
  Receive Date: 20040825
  Receipt Date: 20040805
  Transmission Date: 20050211
  Serious: Yes (Other)
  Sender: FDA-Public Use
  Company Number: JP-JNJFOC-20040804283

PATIENT
  Age: 48 Year
  Sex: Female

DRUGS (11)
  1. REMICADE [Suspect]
     Route: 042
  2. REMICADE [Suspect]
     Route: 042
  3. REMICADE [Suspect]
     Route: 042
  4. REMICADE [Suspect]
     Indication: RHEUMATOID ARTHRITIS
     Route: 042
  5. METHOTREXATE [Concomitant]
  6. CLARITHROMYCIN [Concomitant]
  7. RIMACTANE [Concomitant]
  8. ACTARIT [Concomitant]
  9. DICLOFENAC SODIUM [Concomitant]
  10. ESANBUTOL [Concomitant]
  11. PREDNISOLONE [Concomitant]

REACTIONS (1)
  - MYCOBACTERIUM AVIUM COMPLEX INFECTION [None]
